FAERS Safety Report 12802953 (Version 1)
Quarter: 2016Q4

REPORT INFORMATION
  Report Type: Spontaneous
  Country: US (occurrence: US)
  Receive Date: 20161003
  Receipt Date: 20161003
  Transmission Date: 20170207
  Serious: No
  Sender: FDA-Public Use
  Company Number: US-PFIZER INC-2016454926

PATIENT
  Age: 73 Year
  Sex: Female

DRUGS (1)
  1. PRAZOSIN HCL [Suspect]
     Active Substance: PRAZOSIN HYDROCHLORIDE
     Dosage: 1 CAPSULE, DAILY (TAKE 1 CAPSULE EVERY DAY BY ORAL ROUTE AT BEDTIME FOR 90 DAYS)
     Route: 048

REACTIONS (1)
  - Somnolence [Unknown]
